FAERS Safety Report 19452449 (Version 4)
Quarter: 2023Q2

REPORT INFORMATION
  Report Type: Report from Study
  Country: JP (occurrence: JP)
  Receive Date: 20210623
  Receipt Date: 20230510
  Transmission Date: 20230722
  Serious: Yes (Death, Hospitalization)
  Sender: FDA-Public Use
  Company Number: JP-ABBVIE-19K-087-3004568-00

PATIENT
  Age: 69 Year
  Sex: Male
  Weight: 50 kg

DRUGS (7)
  1. CARBIDOPA\LEVODOPA [Suspect]
     Active Substance: CARBIDOPA\LEVODOPA
     Indication: Parkinson^s disease
     Dosage: MD: 3.0 ML?CD: 1.5 ML/HR ? 16 HRS?ED: 1.0 ML/UNIT ? 1
     Route: 050
     Dates: start: 20190130, end: 20190325
  2. CARBIDOPA\LEVODOPA [Suspect]
     Active Substance: CARBIDOPA\LEVODOPA
     Dosage: MD: 3.0 ML?CD: 3.0 ML/HR ? 16 HRS?ED: 1.0 ML/UNIT ? 1
     Route: 050
     Dates: start: 20190325, end: 20200722
  3. CARBIDOPA\LEVODOPA [Suspect]
     Active Substance: CARBIDOPA\LEVODOPA
     Dosage: MD: 3.0 ML?CD: 2.9 ML/HR ? 16 HRS?ED: 1.0 ML/UNIT ? 1
     Route: 050
     Dates: start: 20200722, end: 20210603
  4. ISTRADEFYLLINE [Concomitant]
     Active Substance: ISTRADEFYLLINE
     Indication: Parkinson^s disease
     Route: 048
     Dates: end: 20210603
  5. Zonisamide ex [Concomitant]
     Indication: Parkinson^s disease
     Route: 048
     Dates: start: 20210603
  6. AMANTADINE HCL NICHIIKO [Concomitant]
     Indication: Parkinson^s disease
     Route: 048
  7. AMLODIPINE [Concomitant]
     Active Substance: AMLODIPINE BESYLATE
     Indication: Product used for unknown indication
     Route: 048
     Dates: end: 20210603

REACTIONS (2)
  - Cardiac disorder [Fatal]
  - Myocardial infarction [Unknown]
